FAERS Safety Report 4615379-5 (Version None)
Quarter: 2005Q1

REPORT INFORMATION
  Report Type: 
  Country: None (occurrence: None)
  Receive Date: 20050317
  Receipt Date: 20050307
  Transmission Date: 20050727
  Serious: Yes (Hospitalization, Other)
  Sender: FDA-Public Use
  Company Number: 2005037232

PATIENT
  Age: 67 Year
  Sex: Female

DRUGS (5)
  1. LIPITOR [Suspect]
     Indication: HYPERCHOLESTEROLAEMIA
     Dosage: 10 MG (1 IN 1 D), ORAL
     Route: 048
     Dates: end: 20050101
  2. ORGAN LYSATE, STANDARIZED (ORGAN LYSATE, STANDARIZED) [Concomitant]
  3. BETHAHISTINE MESILATE (BETHAHISTINE MESILATE) [Concomitant]
  4. REBAMIPIDE (REBAMIPIDE) [Concomitant]
  5. SODIUM BICARBONATE IN PLASTIC CONTAINER [Concomitant]

REACTIONS (2)
  - BILIARY NEOPLASM [None]
  - HEPATIC FUNCTION ABNORMAL [None]
